FAERS Safety Report 26132580 (Version 2)
Quarter: 2025Q4

REPORT INFORMATION
  Report Type: Spontaneous
  Country: EU (occurrence: EU)
  Receive Date: 20251208
  Receipt Date: 20251226
  Transmission Date: 20260118
  Serious: Yes (Other)
  Sender: APELLIS PHARMACEUTICALS
  Company Number: EU-BIOVITRUM-2025-BG-016847

PATIENT

DRUGS (3)
  1. PEGCETACOPLAN [Suspect]
     Active Substance: PEGCETACOPLAN
     Indication: Haemorrhagic disorder
     Dates: start: 2018
  2. PEGCETACOPLAN [Suspect]
     Active Substance: PEGCETACOPLAN
     Dosage: 2 X 1080 MG PER WEEK
  3. PEGCETACOPLAN [Suspect]
     Active Substance: PEGCETACOPLAN
     Dosage: 3 X 1080 MG PER WEEK

REACTIONS (17)
  - Breakthrough haemolysis [Unknown]
  - Neutrophil count decreased [Unknown]
  - Eosinophil count decreased [Unknown]
  - Neutrophil percentage decreased [Unknown]
  - Lymphocyte percentage decreased [Unknown]
  - Monocyte count increased [Unknown]
  - Platelet count decreased [Unknown]
  - Plateletcrit decreased [Unknown]
  - Reticulocyte count decreased [Unknown]
  - Blood alkaline phosphatase decreased [Unknown]
  - Activated partial thromboplastin time shortened [Unknown]
  - Urine ketone body present [Unknown]
  - Vitamin C abnormal [Unknown]
  - Protein urine present [Unknown]
  - Nitrite urine present [Unknown]
  - White blood cells urine positive [Unknown]
  - Off label use [Unknown]
